FAERS Safety Report 21155837 (Version 1)
Quarter: 2022Q3

REPORT INFORMATION
  Report Type: Spontaneous
  Country: US (occurrence: US)
  Receive Date: 20220801
  Receipt Date: 20220801
  Transmission Date: 20221026
  Serious: No
  Sender: FDA-Public Use
  Company Number: US-AMNEAL PHARMACEUTICALS-2022-AMRX-01614

PATIENT
  Sex: Female
  Weight: 51.7 kg

DRUGS (7)
  1. TOBRAMYCIN AND DEXAMETHASONE [Suspect]
     Active Substance: DEXAMETHASONE\TOBRAMYCIN
     Indication: Hordeolum
     Dosage: UNK UNK, QD
     Route: 047
  2. CREON [Concomitant]
     Active Substance: PANCRELIPASE AMYLASE\PANCRELIPASE LIPASE\PANCRELIPASE PROTEASE
     Indication: Pancreatic failure
     Dosage: 09 DOSAGE FORM (1200 MILLIGRAM), DAILY
     Route: 048
  3. HYDROXYZINE HYDROCHLORIDE [Concomitant]
     Active Substance: HYDROXYZINE HYDROCHLORIDE
     Indication: Hypersensitivity
     Dosage: 5 MILLIGRAM, QD
     Route: 048
  4. ZILEUTON [Concomitant]
     Active Substance: ZILEUTON
     Indication: Asthma
     Dosage: 600 MILLIGRAM, BID
     Route: 048
  5. TOPIRAMATE [Concomitant]
     Active Substance: TOPIRAMATE
     Indication: Migraine
     Dosage: 25 MILLIGRAM, QD
     Route: 048
  6. GABAPENTIN [Concomitant]
     Active Substance: GABAPENTIN
     Indication: Neuralgia
     Dosage: 100 MILLIGRAM, QD
     Route: 048
  7. HYOSCYAMINE [Concomitant]
     Active Substance: HYOSCYAMINE
     Indication: Impaired gastric emptying
     Dosage: 1 PILL, HALF TWICE A DAY
     Route: 048

REACTIONS (6)
  - Pollakiuria [Recovered/Resolved]
  - Tinnitus [Recovered/Resolved]
  - Diarrhoea [Recovered/Resolved]
  - Swelling face [Recovered/Resolved]
  - Erythema [Recovered/Resolved]
  - Rash pruritic [Recovered/Resolved]
